FAERS Safety Report 4834899-1 (Version None)
Quarter: 2005Q4

REPORT INFORMATION
  Report Type: 
  Country: None (occurrence: None)
  Receive Date: 20051115
  Receipt Date: 20051102
  Transmission Date: 20060501
  Serious: Yes (Hospitalization)
  Sender: FDA-Public Use
  Company Number: M-05-487

PATIENT
  Age: 72 Year
  Sex: Male
  Weight: 77.1115 kg

DRUGS (1)
  1. PACERONE [Suspect]
     Indication: ARRHYTHMIA
     Dosage: PO
     Route: 048

REACTIONS (3)
  - HYPERTHYROIDISM [None]
  - MYOCARDIAL INFARCTION [None]
  - THYROTOXIC CRISIS [None]
